FAERS Safety Report 12059111 (Version 1)
Quarter: 2016Q1

REPORT INFORMATION
  Report Type: Spontaneous
  Country: US (occurrence: None)
  Receive Date: 20160209
  Receipt Date: 20160209
  Transmission Date: 20160526
  Serious: Yes (Other)
  Sender: FDA-Public Use
  Company Number: None

PATIENT
  Age: 12 Year
  Sex: Male

DRUGS (2)
  1. RISPERIDONE 0.5MG TAB 0.5MG AJANTA [Suspect]
     Active Substance: RISPERIDONE
     Indication: AUTISM
     Route: 048
     Dates: start: 20160103
  2. RISPERIDONE 0.5MG TAB 0.5MG JOUC, GURABO [Suspect]
     Active Substance: RISPERIDONE
     Route: 048
     Dates: start: 20160110

REACTIONS (2)
  - Agitation [None]
  - Abnormal behaviour [None]

NARRATIVE: CASE EVENT DATE: 20160103
